FAERS Safety Report 22006175 (Version 1)
Quarter: 2023Q1

REPORT INFORMATION
  Report Type: Spontaneous
  Country: GB (occurrence: GB)
  Receive Date: 20230217
  Receipt Date: 20230217
  Transmission Date: 20230418
  Serious: Yes (Other)
  Sender: FDA-Public Use
  Company Number: GB-AMGEN-GBRSP2023023592

PATIENT
  Age: 63 Year
  Sex: Female
  Weight: 60 kg

DRUGS (1)
  1. ROMIPLOSTIM [Suspect]
     Active Substance: ROMIPLOSTIM
     Indication: Immune thrombocytopenia
     Dosage: 675 MICROGRAM, QWK
     Route: 065
     Dates: start: 20220512, end: 20230130

REACTIONS (1)
  - Fibrosis [Not Recovered/Not Resolved]

NARRATIVE: CASE EVENT DATE: 20221201
